FAERS Safety Report 18343367 (Version 1)
Quarter: 2020Q4

REPORT INFORMATION
  Report Type: Spontaneous
  Country: US (occurrence: US)
  Receive Date: 20201004
  Receipt Date: 20201004
  Transmission Date: 20210113
  Serious: Yes (Other)
  Sender: FDA-Public Use
  Company Number: None

PATIENT
  Age: 58 Year
  Sex: Female
  Weight: 110.7 kg

DRUGS (1)
  1. BLUMEN ADVANCED HAND SANITIZER CLEAR [Suspect]
     Active Substance: ALCOHOL

REACTIONS (5)
  - Skin burning sensation [None]
  - Rash pruritic [None]
  - Erythema [None]
  - Urticaria [None]
  - Skin haemorrhage [None]
